FAERS Safety Report 7603531-6 (Version None)
Quarter: 2011Q3

REPORT INFORMATION
  Report Type: 
  Country: None (occurrence: None)
  Receive Date: 20110701
  Receipt Date: 20110616
  Transmission Date: 20111222
  Serious: Yes (Hospitalization, Other)
  Sender: FDA-Public Use
  Company Number: AUR-APL-2011-02781

PATIENT
  Age: 61 Year
  Sex: Male

DRUGS (6)
  1. DIPYRIDAMOLE [Concomitant]
  2. SIMVASTATIN [Suspect]
     Indication: PRODUCT USED FOR UNKNOWN INDICATION
  3. ASPIRIN [Concomitant]
  4. OMEPRAZOLE [Suspect]
     Indication: PRODUCT USED FOR UNKNOWN INDICATION
  5. PENICILLIN V [Suspect]
     Indication: PRODUCT USED FOR UNKNOWN INDICATION
  6. CLOPIDOGREL [Suspect]
     Indication: PRODUCT USED FOR UNKNOWN INDICATION

REACTIONS (14)
  - SLEEP DISORDER [None]
  - LIVER INJURY [None]
  - TRANSIENT ISCHAEMIC ATTACK [None]
  - ABDOMINAL TENDERNESS [None]
  - HEPATITIS E [None]
  - VOMITING [None]
  - GYNAECOMASTIA [None]
  - CEREBROVASCULAR ACCIDENT [None]
  - RESTLESSNESS [None]
  - HEADACHE [None]
  - MONOCYTOSIS [None]
  - BODY TEMPERATURE INCREASED [None]
  - PARIETAL CELL ANTIBODY POSITIVE [None]
  - LIVEDO RETICULARIS [None]
